FAERS Safety Report 19898882 (Version 1)
Quarter: 2021Q3

REPORT INFORMATION
  Report Type: Spontaneous
  Country: US (occurrence: US)
  Receive Date: 20210929
  Receipt Date: 20210929
  Transmission Date: 20211014
  Serious: No
  Sender: FDA-Public Use
  Company Number: US-GW PHARMA-202109USGW04651

PATIENT

DRUGS (2)
  1. EPIDIOLEX [Suspect]
     Active Substance: CANNABIDIOL
     Dosage: ADDITIONAL BATCH NUMBER
     Route: 048
  2. EPIDIOLEX [Suspect]
     Active Substance: CANNABIDIOL
     Indication: LENNOX-GASTAUT SYNDROME
     Dosage: 400 MILLIGRAM (DOSE HAS BEEN DECREASED TO 1.5ML TWICE DAILY (UNKNOWN REASON) SCHEDULED TO BE DELIVER
     Route: 048
     Dates: start: 202007

REACTIONS (1)
  - Seizure [Unknown]
